FAERS Safety Report 22987176 (Version 6)
Quarter: 2025Q3

REPORT INFORMATION
  Report Type: Report from Study
  Country: US (occurrence: US)
  Receive Date: 20230926
  Receipt Date: 20250919
  Transmission Date: 20251021
  Serious: Yes (Hospitalization, Other)
  Sender: TAKEDA
  Company Number: US-TAKEDA-2023TUS092376

PATIENT
  Age: 36 Year
  Sex: Female
  Weight: 136.91 kg

DRUGS (23)
  1. BRIGATINIB [Suspect]
     Active Substance: BRIGATINIB
     Indication: Neurofibromatosis
  2. BRIGATINIB [Suspect]
     Active Substance: BRIGATINIB
     Dosage: 180 MILLIGRAM, QD
     Dates: start: 20230810
  3. BRIGATINIB [Suspect]
     Active Substance: BRIGATINIB
     Dosage: 180 MILLIGRAM, QD
     Dates: start: 20240213
  4. BRIGATINIB [Suspect]
     Active Substance: BRIGATINIB
     Dosage: 180 MILLIGRAM, QD
     Dates: start: 202502
  5. BRIGATINIB [Suspect]
     Active Substance: BRIGATINIB
     Dosage: 180 MILLIGRAM, QD
  6. AMLODIPINE [Concomitant]
     Active Substance: AMLODIPINE BESYLATE
  7. DULOXETINE [Concomitant]
     Active Substance: DULOXETINE
  8. HYDROXYZINE [Concomitant]
     Active Substance: HYDROXYZINE HYDROCHLORIDE
  9. PREGABALIN [Concomitant]
     Active Substance: PREGABALIN
  10. TIZANIDINE [Concomitant]
     Active Substance: TIZANIDINE
  11. Artificial tears [Concomitant]
  12. COSMETICS [Concomitant]
     Active Substance: COSMETICS
  13. SENNA [Concomitant]
     Active Substance: SENNOSIDES
  14. FERROUS SULFATE [Concomitant]
     Active Substance: FERROUS SULFATE
  15. FLUDROCORTISONE [Concomitant]
     Active Substance: FLUDROCORTISONE
  16. GUAIFENESIN [Concomitant]
     Active Substance: GUAIFENESIN
  17. LEVETIRACETAM [Concomitant]
     Active Substance: LEVETIRACETAM
  18. ONDANSETRON [Concomitant]
     Active Substance: ONDANSETRON
  19. PANTOPRAZOLE [Concomitant]
     Active Substance: PANTOPRAZOLE
  20. POLYETHYLENE GLYCOL [Concomitant]
     Active Substance: POLYETHYLENE GLYCOL
  21. SIMETHICONE (DIMETHICONE) [Concomitant]
     Active Substance: DIMETHICONE
  22. GABAPENTIN [Concomitant]
     Active Substance: GABAPENTIN
  23. MAGNESIUM [Concomitant]
     Active Substance: MAGNESIUM

REACTIONS (6)
  - Brain neoplasm [Not Recovered/Not Resolved]
  - Infection [Not Recovered/Not Resolved]
  - Dysphagia [Unknown]
  - Off label use [Unknown]
  - Product prescribing issue [Unknown]
  - Muscle spasms [Unknown]

NARRATIVE: CASE EVENT DATE: 20230925
